FAERS Safety Report 6358143-1 (Version None)
Quarter: 2009Q3

REPORT INFORMATION
  Report Type: 
  Country: None (occurrence: None)
  Receive Date: 20090916
  Receipt Date: 20090903
  Transmission Date: 20100115
  Serious: Yes (Other)
  Sender: FDA-Public Use
  Company Number: JP-ASTRAZENECA-2009SE12855

PATIENT
  Age: 62 Year
  Sex: Female
  Weight: 52 kg

DRUGS (8)
  1. MEROPEN [Suspect]
  2. FUROSEMIDE [Concomitant]
     Dosage: CHANGED FROM INTERMITTENT ADMINISTRATION
  3. FUROSEMIDE [Concomitant]
  4. NORADRENALINE [Concomitant]
     Dosage: 0.1 UG/KG/MIN
  5. NORADRENALINE [Concomitant]
     Dosage: 0.55  UG/KG/MIN
  6. DOPAMINE HCL [Concomitant]
     Dosage: 5 UG/KG/MIN
  7. DOPAMINE HCL [Concomitant]
     Dosage: 10 UG/KG/MIN
  8. DOBUTAMINE HCL [Concomitant]
     Dosage: 6 UG/KG/MIN

REACTIONS (1)
  - LIVER DISORDER [None]
